FAERS Safety Report 6043345-4 (Version None)
Quarter: 2009Q1

REPORT INFORMATION
  Report Type: 
  Country: None (occurrence: None)
  Receive Date: 20090115
  Receipt Date: 20090113
  Transmission Date: 20090719
  Serious: Yes (Death)
  Sender: FDA-Public Use
  Company Number: 20096073

PATIENT
  Sex: Male

DRUGS (2)
  1. LIORESAL [Suspect]
     Indication: MUSCLE SPASTICITY
     Dosage: MG, DAILY; INTRATHECAL
     Route: 037
  2. EXCLUDE TREATMENT OF EVENT [Concomitant]

REACTIONS (1)
  - DEATH [None]
